FAERS Safety Report 5399960-4 (Version None)
Quarter: 2007Q3

REPORT INFORMATION
  Report Type: 
  Country: None (occurrence: None)
  Receive Date: 20070727
  Receipt Date: 20070727
  Transmission Date: 20080115
  Serious: Yes (Other)
  Sender: FDA-Public Use
  Company Number: None

PATIENT
  Sex: Female
  Weight: 77.1115 kg

DRUGS (1)
  1. REBIF [Suspect]
     Indication: RELAPSING-REMITTING MULTIPLE SCLEROSIS
     Dosage: 44 MCG TIW SC
     Route: 058
     Dates: start: 20040116

REACTIONS (4)
  - ABDOMINAL PAIN LOWER [None]
  - ECCHYMOSIS [None]
  - ERYTHEMA [None]
  - PAIN [None]
